FAERS Safety Report 20667566 (Version 1)
Quarter: 2022Q2

REPORT INFORMATION
  Report Type: Spontaneous
  Country: US (occurrence: US)
  Receive Date: 20220404
  Receipt Date: 20220404
  Transmission Date: 20220720
  Serious: Yes (Other)
  Sender: FDA-Public Use
  Company Number: US-SUN PHARMACEUTICAL INDUSTRIES LTD-2021R1-298311

PATIENT
  Age: 60 Year
  Sex: Female

DRUGS (1)
  1. DOXORUBICIN [Suspect]
     Active Substance: DOXORUBICIN
     Indication: Product used for unknown indication
     Dosage: UNK
     Route: 065
     Dates: start: 20210510

REACTIONS (4)
  - Dysphagia [Recovering/Resolving]
  - Muscle spasms [Unknown]
  - Flushing [Unknown]
  - Dyspnoea [Unknown]
